FAERS Safety Report 5326548-3 (Version None)
Quarter: 2007Q2

REPORT INFORMATION
  Report Type: 
  Country: None (occurrence: None)
  Receive Date: 20070516
  Receipt Date: 20060501
  Transmission Date: 20071010
  Serious: Yes (Hospitalization)
  Sender: FDA-Public Use
  Company Number: CH-BRISTOL-MYERS SQUIBB COMPANY-13362389

PATIENT
  Age: 66 Year
  Sex: Female

DRUGS (2)
  1. CYCLOPHOSPHAMIDE [Suspect]
     Indication: ANAEMIA HAEMOLYTIC AUTOIMMUNE
  2. ROXITHROMYCIN [Interacting]
     Indication: ANAEMIA HAEMOLYTIC AUTOIMMUNE

REACTIONS (2)
  - DRUG INTERACTION [None]
  - VENOOCCLUSIVE LIVER DISEASE [None]
